FAERS Safety Report 4852113-8 (Version None)
Quarter: 2005Q4

REPORT INFORMATION
  Report Type: 
  Country: None (occurrence: None)
  Receive Date: 20051209
  Receipt Date: 20051205
  Transmission Date: 20060501
  Serious: Yes (Death)
  Sender: FDA-Public Use
  Company Number: PERC20050053

PATIENT
  Age: 72 Year
  Sex: Male

DRUGS (4)
  1. PERCOCET [Suspect]
     Indication: CANCER PAIN
     Dosage: PO
     Route: 048
     Dates: start: 20010101, end: 20051101
  2. HORMONE THERAPY [Concomitant]
  3. HEART MEDICATIONS [Concomitant]
  4. INSULIN [Concomitant]

REACTIONS (10)
  - COMPLETED SUICIDE [None]
  - DELUSION [None]
  - DEPRESSION [None]
  - DRUG DEPENDENCE [None]
  - HALLUCINATION [None]
  - METASTASIS [None]
  - OVERDOSE [None]
  - PERSONALITY CHANGE [None]
  - TESTIS CANCER [None]
  - VERBALLY ABUSED [None]
